FAERS Safety Report 7797456-3 (Version None)
Quarter: 2011Q4

REPORT INFORMATION
  Report Type: 
  Country: None (occurrence: None)
  Receive Date: 20111005
  Receipt Date: 20110929
  Transmission Date: 20120403
  Serious: Yes (Hospitalization, Other)
  Sender: FDA-Public Use
  Company Number: DE-ABBOTT-11P-062-0859902-00

PATIENT
  Sex: Male

DRUGS (2)
  1. HUMIRA [Suspect]
     Indication: CROHN'S DISEASE
     Dates: start: 20091112
  2. INFUSION [Concomitant]
     Indication: OSTEOPOROSIS
     Dosage: ONCE PER YEAR

REACTIONS (2)
  - DENTAL CARIES [None]
  - ILEITIS [None]
